FAERS Safety Report 6285697-6 (Version None)
Quarter: 2009Q3

REPORT INFORMATION
  Report Type: 
  Country: None (occurrence: None)
  Receive Date: 20090724
  Receipt Date: 20090717
  Transmission Date: 20100115
  Serious: Yes (Other)
  Sender: FDA-Public Use
  Company Number: 2009US001506

PATIENT
  Age: 18 Year
  Sex: Female

DRUGS (3)
  1. AMBISOME [Suspect]
     Indication: ASPERGILLOSIS
     Dosage: 10 MG/KG, UID/QD,; 500 MG, UID/QD, IV NOS
     Route: 042
  2. ABELCET [Suspect]
     Indication: ASPERGILLOSIS
     Dosage: 250 MG, UID/QD,
  3. VORICONAZOLE (VORICONAZOLE) [Concomitant]

REACTIONS (14)
  - BLOOD BICARBONATE DECREASED [None]
  - BRONCHOPULMONARY ASPERGILLOSIS [None]
  - CARDIO-RESPIRATORY ARREST [None]
  - CONVULSION [None]
  - DISEASE PROGRESSION [None]
  - ENTEROCOCCAL BACTERAEMIA [None]
  - GLYCOSURIA [None]
  - HYPERGLYCAEMIA [None]
  - HYPONATRAEMIA [None]
  - HYPOTENSION [None]
  - NEPHROGENIC DIABETES INSIPIDUS [None]
  - NO THERAPEUTIC RESPONSE [None]
  - TACHYCARDIA [None]
  - THERAPEUTIC RESPONSE DECREASED [None]
